FAERS Safety Report 9761034 (Version 1)
Quarter: 2013Q4

REPORT INFORMATION
  Report Type: Spontaneous
  Country: US (occurrence: US)
  Receive Date: 20131216
  Receipt Date: 20131216
  Transmission Date: 20140711
  Serious: Yes (Other)
  Sender: FDA-Public Use
  Company Number: US-ABBVIE-13P-163-1177292-00

PATIENT
  Sex: 0

DRUGS (1)
  1. LUPRON DEPOT [Suspect]
     Indication: PRODUCT USED FOR UNKNOWN INDICATION
     Dates: start: 2010

REACTIONS (10)
  - Laparotomy [Unknown]
  - Anger [Unknown]
  - Hot flush [Unknown]
  - Mood swings [Unknown]
  - Depression [Unknown]
  - Night sweats [Unknown]
  - Endometriosis [Unknown]
  - Nausea [Unknown]
  - Dizziness [Unknown]
  - Migraine [Unknown]
